FAERS Safety Report 24414771 (Version 1)
Quarter: 2024Q4

REPORT INFORMATION
  Report Type: Spontaneous
  Country: PL (occurrence: PL)
  Receive Date: 20241009
  Receipt Date: 20241009
  Transmission Date: 20250115
  Serious: Yes (Life-Threatening, Hospitalization)
  Sender: AUROBINDO
  Company Number: PL-URPL-1-4340-2020

PATIENT
  Age: 92 Year
  Sex: Female
  Weight: 45 kg

DRUGS (1)
  1. ALPRAZOLAM [Suspect]
     Active Substance: ALPRAZOLAM
     Indication: Product used for unknown indication
     Dosage: 4.5 MILLIGRAM
     Route: 065
     Dates: start: 20200815, end: 20200815

REACTIONS (2)
  - Toxicity to various agents [Recovering/Resolving]
  - Accidental exposure to product [Recovering/Resolving]

NARRATIVE: CASE EVENT DATE: 20200815
